FAERS Safety Report 4533205-X (Version None)
Quarter: 2005Q1

REPORT INFORMATION
  Report Type: 
  Country: None (occurrence: None)
  Receive Date: 20041206
  Receipt Date: 20041025
  Transmission Date: 20050727
  Serious: No
  Sender: FDA-Public Use
  Company Number: USA041082155

PATIENT
  Age: 59 Year
  Sex: Female

DRUGS (1)
  1. CYMBALTA [Suspect]
     Dosage: 30 MG/1 DAY
     Dates: start: 20041022

REACTIONS (3)
  - ERYTHEMA [None]
  - HEADACHE [None]
  - HYPOVENTILATION [None]
